FAERS Safety Report 7047777-7 (Version None)
Quarter: 2010Q4

REPORT INFORMATION
  Report Type: 
  Country: None (occurrence: None)
  Receive Date: 20101015
  Receipt Date: 20101006
  Transmission Date: 20110411
  Serious: Yes (Hospitalization, Other)
  Sender: FDA-Public Use
  Company Number: US-PFIZER INC-2010117197

PATIENT
  Sex: Female
  Weight: 77.11 kg

DRUGS (1)
  1. SUTENT [Suspect]
     Indication: GASTROINTESTINAL STROMAL TUMOUR
     Dosage: 25 MG TO 37.5 MG DAILY
     Route: 048
     Dates: start: 20080501

REACTIONS (1)
  - PYODERMA GANGRENOSUM [None]
